FAERS Safety Report 9547937 (Version 1)
Quarter: 2013Q3

REPORT INFORMATION
  Report Type: Spontaneous
  Country: US (occurrence: US)
  Receive Date: 20130924
  Receipt Date: 20130924
  Transmission Date: 20140515
  Serious: No
  Sender: FDA-Public Use
  Company Number: US-PURDUE-USA-2012-0083130

PATIENT
  Sex: Female

DRUGS (2)
  1. MS CONTIN TABLETS [Suspect]
     Indication: PAIN
     Dosage: 15 MG, TID
  2. FENTANYL [Suspect]
     Indication: PAIN
     Dosage: 25 MCG, UNK
     Route: 062

REACTIONS (1)
  - Inadequate analgesia [Unknown]
